FAERS Safety Report 7940668-6 (Version None)
Quarter: 2011Q4

REPORT INFORMATION
  Report Type: 
  Country: None (occurrence: None)
  Receive Date: 20111114
  Receipt Date: 20110311
  Transmission Date: 20120403
  Serious: Yes (Death, Other)
  Sender: FDA-Public Use
  Company Number: 2011S1000190

PATIENT
  Age: 65 Year
  Sex: Female

DRUGS (1)
  1. CUBICIN [Suspect]
     Dosage: 6 MG/KG;Q48H;IV
     Route: 042

REACTIONS (2)
  - DISEASE COMPLICATION [None]
  - RHABDOMYOLYSIS [None]
